FAERS Safety Report 22028925 (Version 1)
Quarter: 2023Q1

REPORT INFORMATION
  Report Type: Spontaneous
  Country: US (occurrence: None)
  Receive Date: 20230221
  Receipt Date: 20230221
  Transmission Date: 20230417
  Serious: Yes (Other)
  Sender: FDA-Public Use
  Company Number: None

PATIENT
  Age: 33 Year
  Sex: Male
  Weight: 76.5 kg

DRUGS (4)
  1. AQUAPHOR [Suspect]
     Active Substance: PETROLATUM
     Indication: Skin fissures
     Route: 054
     Dates: start: 20230212, end: 20230219
  2. AQUAPHOR [Suspect]
     Active Substance: PETROLATUM
     Indication: Sensitivity to weather change
  3. VITAMIN D [Concomitant]
     Active Substance: VITAMIN D NOS
  4. VITAMIN D [Concomitant]
     Active Substance: VITAMIN D NOS

REACTIONS (5)
  - Application site pain [None]
  - Accidental exposure to product [None]
  - Eye swelling [None]
  - Eye pruritus [None]
  - Rash erythematous [None]

NARRATIVE: CASE EVENT DATE: 20230219
